FAERS Safety Report 25555433 (Version 1)
Quarter: 2025Q3

REPORT INFORMATION
  Report Type: Spontaneous
  Country: US (occurrence: None)
  Receive Date: 20250715
  Receipt Date: 20250715
  Transmission Date: 20251020
  Serious: Yes (Hospitalization)
  Sender: FDA-CTU
  Company Number: None

PATIENT
  Age: 64 Year
  Sex: Female
  Weight: 79.8 kg

DRUGS (2)
  1. DARATUMUMAB\HYALURONIDASE-FIHJ [Suspect]
     Active Substance: DARATUMUMAB\HYALURONIDASE-FIHJ
     Dates: start: 20210823, end: 20250317
  2. LENALIDOMIDE [Concomitant]
     Active Substance: LENALIDOMIDE

REACTIONS (8)
  - Disease progression [None]
  - Metabolic encephalopathy [None]
  - Meningitis bacterial [None]
  - CSF protein increased [None]
  - CSF white blood cell count increased [None]
  - CSF neutrophil count increased [None]
  - Central nervous system fungal infection [None]
  - Intracranial pressure increased [None]

NARRATIVE: CASE EVENT DATE: 20250501
